FAERS Safety Report 5192208-5 (Version None)
Quarter: 2006Q4

REPORT INFORMATION
  Report Type: 
  Country: None (occurrence: None)
  Receive Date: 20061221
  Receipt Date: 20061221
  Transmission Date: 20070319
  Serious: Yes (Death)
  Sender: FDA-Public Use
  Company Number: None

PATIENT
  Age: 57 Year
  Sex: Female
  Weight: 47.1741 kg

DRUGS (1)
  1. QUININE [Suspect]

REACTIONS (1)
  - CARDIAC DISORDER [None]
